FAERS Safety Report 8784838 (Version 1)
Quarter: 2012Q4

REPORT INFORMATION
  Report Type: Spontaneous
  Country: US (occurrence: None)
  Receive Date: 20120831
  Receipt Date: 20120831
  Transmission Date: 20130627
  Serious: Yes (Hospitalization)
  Sender: FDA-Public Use
  Company Number: 120375

PATIENT
  Age: 66 Year
  Sex: Male
  Weight: 73.48 kg

DRUGS (6)
  1. HALFLYTELY AND BISACODYL [Suspect]
     Indication: OFF LABEL USE
     Dosage: /2L/1X/
     Route: 048
     Dates: start: 20120812
  2. LIPITOR [Concomitant]
  3. PROCARDIA [Concomitant]
  4. SYNTHROID [Concomitant]
  5. ALLOPURINOL [Concomitant]
  6. XALATAN [Concomitant]

REACTIONS (6)
  - Abdominal pain [None]
  - Vomiting [None]
  - Condition aggravated [None]
  - Asthenia [None]
  - Dehydration [None]
  - Blood potassium decreased [None]
